FAERS Safety Report 18040596 (Version 2)
Quarter: 2023Q1

REPORT INFORMATION
  Report Type: Spontaneous
  Country: US (occurrence: None)
  Receive Date: 20200717
  Receipt Date: 20230108
  Transmission Date: 20230418
  Serious: No
  Sender: FDA-Public Use
  Company Number: US-ROCHE-2483022

PATIENT
  Sex: Male

DRUGS (2)
  1. HEMLIBRA [Suspect]
     Active Substance: EMICIZUMAB-KXWH
     Indication: Factor VIII deficiency
     Dosage: STRENGTH OF HEMLIBRA WAS 60/0.4MG/ML
     Route: 058
     Dates: start: 20190625
  2. HEMLIBRA [Suspect]
     Active Substance: EMICIZUMAB-KXWH
     Dosage: STRENGTH:  60/0.4MG/ML
     Route: 058
     Dates: start: 20221012

REACTIONS (3)
  - Head injury [Unknown]
  - Haemorrhage [Recovered/Resolved]
  - Arthritis [Unknown]
